FAERS Safety Report 10004898 (Version 1)
Quarter: 2014Q1

REPORT INFORMATION
  Report Type: Spontaneous
  Country: FR (occurrence: FR)
  Receive Date: 20140312
  Receipt Date: 20140312
  Transmission Date: 20141002
  Serious: Yes (Hospitalization)
  Sender: FDA-Public Use
  Company Number: FR-GE HEALTHCARE MEDICAL DIAGNOSTICS-VISP-PR-1402S-0083

PATIENT
  Age: 49 Year
  Sex: Male

DRUGS (11)
  1. VISIPAQUE [Suspect]
     Indication: WEIGHT DECREASED
     Dosage: DOSE NOT REPORTED
     Route: 065
     Dates: start: 20131224, end: 20131224
  2. VISIPAQUE [Suspect]
     Indication: OESOPHAGEAL DISORDER
  3. VISIPAQUE [Suspect]
     Indication: DIAGNOSTIC PROCEDURE
  4. LEVOTHYROX [Concomitant]
  5. CHONDROSULF [Concomitant]
  6. KARDEGIC [Concomitant]
  7. GUTRON [Concomitant]
  8. LAROXYL [Concomitant]
  9. INEXIUM [Concomitant]
  10. TARDYFERON [Concomitant]
  11. DOMPERIDONE [Concomitant]

REACTIONS (6)
  - Rash morbilliform [Recovered/Resolved]
  - Pruritus [Recovered/Resolved]
  - Oedema peripheral [Recovered/Resolved]
  - Lip oedema [Recovered/Resolved]
  - Rash erythematous [Recovered/Resolved]
  - Skin exfoliation [Recovered/Resolved]
